FAERS Safety Report 8326944-6 (Version None)
Quarter: 2012Q2

REPORT INFORMATION
  Report Type: 
  Country: None (occurrence: None)
  Receive Date: 20120501
  Receipt Date: 20120427
  Transmission Date: 20120825
  Serious: Yes (Other)
  Sender: FDA-Public Use
  Company Number: US-ELI_LILLY_AND_COMPANY-US201204009885

PATIENT
  Sex: Female

DRUGS (5)
  1. HUMALOG [Suspect]
     Indication: DIABETES MELLITUS
     Dosage: UNK, TID
  2. LANTUS [Concomitant]
     Dosage: UNK
  3. HUMALOG [Suspect]
     Dosage: UNK, TID
  4. HUMALOG [Suspect]
     Dosage: UNK, TID
  5. HUMALOG [Suspect]
     Dosage: UNK, TID

REACTIONS (15)
  - NAUSEA [None]
  - FOOT FRACTURE [None]
  - LOWER LIMB FRACTURE [None]
  - BLOOD GLUCOSE INCREASED [None]
  - HEADACHE [None]
  - DRUG DOSE OMISSION [None]
  - GAIT DISTURBANCE [None]
  - FEELING HOT [None]
  - ANKLE FRACTURE [None]
  - DRUG DISPENSING ERROR [None]
  - MALAISE [None]
  - HYPERGLYCAEMIC UNCONSCIOUSNESS [None]
  - VISION BLURRED [None]
  - HYPERHIDROSIS [None]
  - FALL [None]
